FAERS Safety Report 17557355 (Version 1)
Quarter: 2020Q1

REPORT INFORMATION
  Report Type: Spontaneous
  Country: US (occurrence: US)
  Receive Date: 20200318
  Receipt Date: 20200318
  Transmission Date: 20200409
  Serious: Yes (Life-Threatening, Hospitalization)
  Sender: FDA-Public Use
  Company Number: US-TEVA-2020-US-1204116

PATIENT
  Age: 23 Year
  Sex: Female

DRUGS (6)
  1. MAGNESIUM [Concomitant]
     Active Substance: MAGNESIUM
     Indication: TORSADE DE POINTES
     Route: 040
  2. LOPERAMIDE [Suspect]
     Active Substance: LOPERAMIDE
     Indication: DRUG ABUSE
     Dosage: INGESTED 80 TABLETS
     Route: 048
  3. LIDOCAINE. [Suspect]
     Active Substance: LIDOCAINE
     Indication: ARRHYTHMIA
     Route: 041
  4. HEPARIN [Suspect]
     Active Substance: HEPARIN SODIUM
     Indication: ANTICOAGULANT THERAPY
     Route: 065
  5. DOBUTAMINE [Concomitant]
     Active Substance: DOBUTAMINE HYDROCHLORIDE
     Indication: STRESS CARDIOMYOPATHY
     Route: 065
  6. LOPERAMIDE [Suspect]
     Active Substance: LOPERAMIDE
     Indication: OVERDOSE

REACTIONS (17)
  - Drug abuse [Unknown]
  - Electrocardiogram ST segment elevation [Recovered/Resolved]
  - Deep vein thrombosis [Unknown]
  - Drug ineffective [Unknown]
  - Overdose [Unknown]
  - Haemodynamic instability [Recovered/Resolved]
  - Cardiac arrest [Recovered/Resolved]
  - Hypotension [Recovered/Resolved]
  - Cardiogenic shock [Recovered/Resolved]
  - Stress cardiomyopathy [Recovered/Resolved]
  - Heparin-induced thrombocytopenia [Recovering/Resolving]
  - Hepatic haematoma [Unknown]
  - Arterial thrombosis [Unknown]
  - Arterial haemorrhage [Unknown]
  - Pulmonary embolism [Unknown]
  - Torsade de pointes [Recovered/Resolved]
  - Pulseless electrical activity [Recovered/Resolved]
